FAERS Safety Report 6577571-2 (Version None)
Quarter: 2010Q1

REPORT INFORMATION
  Report Type: 
  Country: None (occurrence: None)
  Receive Date: 20100211
  Receipt Date: 20100111
  Transmission Date: 20100710
  Serious: No
  Sender: FDA-Public Use
  Company Number: US-BAYER-201010673BCC

PATIENT
  Age: 19 Year
  Sex: Male
  Weight: 68 kg

DRUGS (2)
  1. ALEVE [Suspect]
     Indication: PAIN IN EXTREMITY
     Dosage: TOTAL DAILY DOSE: 1100 MG  UNIT DOSE: 220 MG
     Route: 048
     Dates: start: 20100111
  2. HYDROCODONE [Concomitant]
     Indication: PAIN IN EXTREMITY
     Dosage: AS USED: 650 MG  UNIT DOSE: 650 MG
     Route: 048

REACTIONS (2)
  - DYSARTHRIA [None]
  - NAUSEA [None]
